FAERS Safety Report 6195476-6 (Version None)
Quarter: 2009Q2

REPORT INFORMATION
  Report Type: 
  Country: None (occurrence: None)
  Receive Date: 20090519
  Receipt Date: 20090505
  Transmission Date: 20091009
  Serious: Yes (Hospitalization)
  Sender: FDA-Public Use
  Company Number: NL-GENENTECH-278837

PATIENT
  Sex: Male

DRUGS (4)
  1. RITUXIMAB [Suspect]
     Indication: NEOPLASM
     Dosage: 1000 MG, QD
     Route: 042
     Dates: start: 20090219
  2. DEXAMETHASONE 4MG TAB [Suspect]
     Indication: NEOPLASM
     Dosage: 40 MG, QD
     Route: 048
     Dates: start: 20090219
  3. CISPLATIN [Suspect]
     Indication: NEOPLASM
     Dosage: 200 MG, QD
     Route: 042
     Dates: start: 20090219
  4. CYTARABINE [Suspect]
     Indication: NEOPLASM
     Dosage: 8000 MG, QD
     Route: 042
     Dates: start: 20090220

REACTIONS (1)
  - FEBRILE NEUTROPENIA [None]
